FAERS Safety Report 4907634-6 (Version None)
Quarter: 2006Q1

REPORT INFORMATION
  Report Type: 
  Country: None (occurrence: None)
  Receive Date: 20060210
  Receipt Date: 20050823
  Transmission Date: 20060701
  Serious: Yes (Hospitalization, Disabling)
  Sender: FDA-Public Use
  Company Number: US-MERCK-0508USA03951

PATIENT
  Age: 43 Year
  Sex: Female
  Weight: 55 kg

DRUGS (22)
  1. WELLBUTRIN [Concomitant]
     Indication: EX-SMOKER
     Route: 065
     Dates: start: 20001216, end: 20021213
  2. BUSPAR [Concomitant]
     Route: 065
  3. TRAZODONE HYDROCHLORIDE [Concomitant]
     Route: 065
  4. BETOPTIC [Concomitant]
     Route: 065
  5. DURATUSS G [Concomitant]
     Route: 065
  6. HYDROXYZINE HYDROCHLORIDE [Concomitant]
     Route: 065
  7. SARAFEM [Concomitant]
     Route: 065
  8. ACYCLOVIR [Concomitant]
     Route: 065
  9. TRIMOX [Concomitant]
     Route: 065
  10. METRONIDAZOLE [Concomitant]
     Route: 065
  11. VICODIN [Concomitant]
     Route: 065
  12. CHLORHEXIDINE HYDROCHLORIDE [Concomitant]
     Route: 065
  13. ZITHROMAX [Concomitant]
     Route: 065
  14. CUTIVATE [Concomitant]
     Route: 065
  15. CIPROFLOXACIN [Concomitant]
     Route: 065
  16. MAVIK [Concomitant]
     Route: 065
  17. ALLEGRA [Concomitant]
     Route: 065
  18. VIOXX [Suspect]
     Indication: SYSTEMIC LUPUS ERYTHEMATOSUS
     Route: 048
     Dates: start: 20000615, end: 20040624
  19. PREDNISONE [Concomitant]
     Indication: INFLAMMATION
     Route: 065
  20. LORCET-HD [Concomitant]
     Indication: PAIN
     Route: 065
     Dates: start: 19920101
  21. LEVOXYL [Concomitant]
     Indication: THYROID DISORDER
     Route: 065
  22. TRAVATAN [Concomitant]
     Indication: GLAUCOMA
     Route: 065

REACTIONS (5)
  - DEPRESSION [None]
  - GENERALISED ANXIETY DISORDER [None]
  - MYOCARDIAL INFARCTION [None]
  - POST-TRAUMATIC STRESS DISORDER [None]
  - SLEEP DISORDER [None]
